FAERS Safety Report 4640256-3 (Version None)
Quarter: 2005Q2

REPORT INFORMATION
  Report Type: 
  Country: None (occurrence: None)
  Receive Date: 20050420
  Receipt Date: 20050413
  Transmission Date: 20051028
  Serious: Yes (Other)
  Sender: FDA-Public Use
  Company Number: US-GLAXOSMITHKLINE-A0554033A

PATIENT
  Age: 48 Year
  Sex: Male

DRUGS (4)
  1. WELLBUTRIN [Suspect]
     Indication: DEPRESSION
     Dosage: 300MG PER DAY
     Route: 048
     Dates: start: 20040101
  2. KLONOPIN [Concomitant]
  3. NEXIUM [Concomitant]
  4. LASIX [Concomitant]

REACTIONS (1)
  - POST PROCEDURAL HAEMORRHAGE [None]
